FAERS Safety Report 14016321 (Version 1)
Quarter: 2017Q3

REPORT INFORMATION
  Report Type: Spontaneous
  Country: US (occurrence: US)
  Receive Date: 20170927
  Receipt Date: 20170927
  Transmission Date: 20171128
  Serious: Yes (Other)
  Sender: FDA-Public Use
  Company Number: US-SA-2017SA026134

PATIENT
  Age: 47 Year
  Sex: Female

DRUGS (2)
  1. LEMTRADA [Suspect]
     Active Substance: ALEMTUZUMAB
     Indication: MULTIPLE SCLEROSIS
     Route: 041
     Dates: start: 201701
  2. LEMTRADA [Suspect]
     Active Substance: ALEMTUZUMAB
     Indication: MULTIPLE SCLEROSIS
     Route: 041
     Dates: start: 201601

REACTIONS (7)
  - Urinary incontinence [Unknown]
  - Fatigue [Unknown]
  - Multiple sclerosis [Unknown]
  - Expanded disability status scale score increased [Unknown]
  - Quadriplegia [Unknown]
  - Lymphocyte count decreased [Unknown]
  - Wrong technique in product usage process [Unknown]
